FAERS Safety Report 7007775-6 (Version None)
Quarter: 2010Q3

REPORT INFORMATION
  Report Type: 
  Country: None (occurrence: None)
  Receive Date: 20100920
  Receipt Date: 20100913
  Transmission Date: 20110219
  Serious: Yes (Death)
  Sender: FDA-Public Use
  Company Number: 2010SP048825

PATIENT
  Sex: Female

DRUGS (7)
  1. CELESTONE [Suspect]
     Indication: DRUG EXPOSURE DURING PREGNANCY
     Dosage: ; TRPL
     Route: 064
     Dates: start: 20100523, end: 20100524
  2. ADALAT [Suspect]
     Indication: DRUG EXPOSURE DURING PREGNANCY
     Dosage: ; TRPL
     Route: 064
     Dates: start: 20100524, end: 20100524
  3. TRACTOCILE (ATOSIBAN) [Suspect]
     Indication: DRUG EXPOSURE DURING PREGNANCY
     Dosage: ;TRPL
     Route: 064
     Dates: start: 20100524, end: 20100524
  4. ERYTHROMYCIN [Suspect]
     Indication: DRUG EXPOSURE DURING PREGNANCY
     Dosage: ; TRMA
     Route: 063
     Dates: start: 20100522, end: 20100524
  5. EPHEDRINE (OTHER MANUFACTURER) (EPHEDRINE) [Suspect]
     Indication: DRUG EXPOSURE DURING PREGNANCY
     Dosage: ; TRPL
     Route: 064
     Dates: start: 20100524, end: 20100524
  6. PHENYLEPHRINE HCL [Suspect]
     Indication: DRUG EXPOSURE DURING PREGNANCY
     Dosage: ; TRPL
     Route: 064
     Dates: start: 20100524, end: 20100524
  7. VOLUVEN [Suspect]
     Indication: DRUG EXPOSURE DURING PREGNANCY
     Dosage: ; TRPL
     Route: 064
     Dates: start: 20100524, end: 20100524

REACTIONS (6)
  - BETA HAEMOLYTIC STREPTOCOCCAL INFECTION [None]
  - ESCHERICHIA INFECTION [None]
  - FOETAL ACIDOSIS [None]
  - INTRA-UTERINE DEATH [None]
  - MATERNAL DRUGS AFFECTING FOETUS [None]
  - PREMATURE BABY [None]
